FAERS Safety Report 16586510 (Version 3)
Quarter: 2019Q3

REPORT INFORMATION
  Report Type: Spontaneous
  Country: US (occurrence: US)
  Receive Date: 20190717
  Receipt Date: 20190906
  Transmission Date: 20191004
  Serious: Yes (Death, Hospitalization)
  Sender: FDA-Public Use
  Company Number: US-JNJFOC-20190710644

PATIENT
  Age: 39 Year
  Sex: Male

DRUGS (16)
  1. PEGFILGRASTIM [Concomitant]
     Active Substance: PEGFILGRASTIM
     Dosage: 10 KG/M3, UNK
     Route: 058
     Dates: start: 20190621
  2. HYDROMORPHONE [Concomitant]
     Active Substance: HYDROMORPHONE
     Route: 048
     Dates: start: 20190525
  3. LENALIDOMIDE [Suspect]
     Active Substance: LENALIDOMIDE
     Indication: DIFFUSE LARGE B-CELL LYMPHOMA
     Dosage: 15 MG, UNK (ON DAYS 1 TO 14 EVERY 3 WEEKS)
     Route: 048
     Dates: start: 20190520, end: 20190624
  4. ACYCLOVIR                          /00587301/ [Concomitant]
     Active Substance: ACYCLOVIR
     Dosage: 400 MG, BID
     Route: 048
     Dates: start: 20190517
  5. PREDNISONE. [Suspect]
     Active Substance: PREDNISONE
     Indication: DIFFUSE LARGE B-CELL LYMPHOMA
     Dosage: 100 MG, UNK (ON DAYS 1 TO 7 EVERY 3 WEEKS)
     Route: 048
     Dates: start: 20190520, end: 20190620
  6. IMBRUVICA [Suspect]
     Active Substance: IBRUTINIB
     Indication: DIFFUSE LARGE B-CELL LYMPHOMA
     Dosage: 560 MG, UNK (ON DAYS 1 TO 14 EVERY 3 WEEKS)
     Route: 048
     Dates: start: 20190520, end: 20190625
  7. COLLAGENASE [Concomitant]
     Active Substance: COLLAGENASE CLOSTRIDIUM HISTOLYTICUM
     Dosage: 250 U/G, QD (ONE APPLICATION TO AFFECTED AREA TOPICALLY)
     Route: 061
     Dates: start: 20190522
  8. VENETOCLAX. [Suspect]
     Active Substance: VENETOCLAX
     Indication: DIFFUSE LARGE B-CELL LYMPHOMA
     Dosage: 800 MG, UNK (ON DAYS 2 TO 14 EVERY 3 WEEKS)
     Route: 048
     Dates: start: 20190521, end: 20190624
  9. VENETOCLAX. [Suspect]
     Active Substance: VENETOCLAX
     Dosage: 800 MG, UNK (ON DAYS 2 TO 14 EVERY 3 WEEKS)
     Route: 048
     Dates: end: 20190715
  10. SENNA FRUIT [Concomitant]
     Dosage: 8.6 MG, ONCE A DAY, PRN
     Route: 048
     Dates: start: 20190518
  11. MIRALAX [Concomitant]
     Active Substance: POLYETHYLENE GLYCOL 3350
     Dosage: 17 G, PRN
     Dates: start: 20190517
  12. SULFAMETHOXAZOLE W/TRIMETHOPRIM [Concomitant]
     Active Substance: SULFAMETHOXAZOLE\TRIMETHOPRIM
     Dosage: UNK (800MG/160MG)
     Dates: start: 20190520
  13. OBINUTUZUMAB. [Suspect]
     Active Substance: OBINUTUZUMAB
     Indication: DIFFUSE LARGE B-CELL LYMPHOMA
     Dosage: 1000 MG, UNK (ON DAYS 1 TO 2 EVERY 3 WEEKS)
     Route: 042
     Dates: start: 20190520, end: 20190615
  14. POTASSIUM CHLORIDE. [Concomitant]
     Active Substance: POTASSIUM CHLORIDE
     Dosage: 20 MEQ, QD
     Route: 048
     Dates: start: 20190621
  15. MORPHINE [Concomitant]
     Active Substance: MORPHINE
     Route: 048
     Dates: start: 20190517
  16. NIVOLUMAB [Concomitant]
     Active Substance: NIVOLUMAB
     Dosage: UNK
     Dates: start: 201903, end: 201905

REACTIONS (2)
  - Disease progression [Fatal]
  - Diarrhoea [Recovered/Resolved]

NARRATIVE: CASE EVENT DATE: 20190622
